FAERS Safety Report 24213083 (Version 2)
Quarter: 2025Q1

REPORT INFORMATION
  Report Type: Report from Study
  Country: BR (occurrence: BR)
  Receive Date: 20240815
  Receipt Date: 20250205
  Transmission Date: 20250408
  Serious: Yes (Disabling, Other)
  Sender: TAKEDA
  Company Number: BR-TAKEDA-2024TUS081269

PATIENT
  Sex: Male

DRUGS (2)
  1. HEMO-8R [Suspect]
     Active Substance: ANTIHEMOPHILIC FACTOR, HUMAN RECOMBINANT
     Indication: Factor VIII deficiency
  2. HEMO-8R [Suspect]
     Active Substance: ANTIHEMOPHILIC FACTOR, HUMAN RECOMBINANT
     Dosage: 1000 INTERNATIONAL UNIT, 3/WEEK

REACTIONS (8)
  - Ligament sprain [Not Recovered/Not Resolved]
  - Post procedural haemorrhage [Recovered/Resolved]
  - Product use issue [Unknown]
  - Gait disturbance [Recovered/Resolved]
  - Pain [Recovered/Resolved]
  - Restlessness [Recovered/Resolved]
  - Limb injury [Recovered/Resolved]
  - Joint swelling [Recovered/Resolved]
